FAERS Safety Report 5102673-7 (Version None)
Quarter: 2006Q3

REPORT INFORMATION
  Report Type: 
  Country: None (occurrence: None)
  Receive Date: 20060907
  Receipt Date: 20060825
  Transmission Date: 20061208
  Serious: Yes (Hospitalization)
  Sender: FDA-Public Use
  Company Number: 2006091187

PATIENT
  Age: 73 Year
  Sex: Male

DRUGS (6)
  1. LIPITOR [Suspect]
     Indication: HYPERLIPIDAEMIA
     Dosage: 10 MG (DAILY), ORAL
     Route: 048
     Dates: start: 20041125, end: 20060615
  2. KETAS (IBUDILAST) [Suspect]
     Indication: CEREBRAL INFARCTION
     Dosage: 30 MG (DAILY), ORAL
     Route: 047
     Dates: start: 20040615, end: 20060615
  3. VALSARTAN [Suspect]
     Indication: HYPERTENSION
     Dosage: 80 MG (DAILY), ORAL
     Route: 048
     Dates: start: 20040622, end: 20060615
  4. METFORMIN HCL [Suspect]
     Indication: DIABETES MELLITUS
     Dosage: 500 MG (DAILY), ORAL
     Route: 048
     Dates: start: 20041124, end: 20060616
  5. BUFFERIN [Suspect]
     Indication: CEREBRAL INFARCTION
     Dosage: 81 MG (DAILY),ORAL
     Route: 048
     Dates: start: 20040413, end: 20060615
  6. FAMOTIDINE [Suspect]
     Indication: GASTRITIS
     Dosage: 20 MG (DAILY),ORAL
     Route: 048
     Dates: start: 20040413, end: 20060615

REACTIONS (10)
  - DIABETES MELLITUS [None]
  - DRUG HYPERSENSITIVITY [None]
  - HYPERLIPIDAEMIA [None]
  - HYPERTENSION [None]
  - INFECTION [None]
  - PERITONSILLAR ABSCESS [None]
  - STEVENS-JOHNSON SYNDROME [None]
  - TONSILLITIS [None]
  - TOXIC SKIN ERUPTION [None]
  - VIRAL INFECTION [None]
